FAERS Safety Report 8695758 (Version 2)
Quarter: 2013Q4

REPORT INFORMATION
  Report Type: Spontaneous
  Country: US (occurrence: US)
  Receive Date: 20120731
  Receipt Date: 20131106
  Transmission Date: 20140711
  Serious: Yes (Other)
  Sender: FDA-Public Use
  Company Number: US-009507513-1207USA010602

PATIENT
  Sex: 0

DRUGS (1)
  1. ZOCOR [Suspect]
     Dosage: 80 MG, UNK
     Route: 048

REACTIONS (9)
  - Gait disturbance [Unknown]
  - Skin haemorrhage [Unknown]
  - Immune system disorder [Unknown]
  - Headache [Unknown]
  - Vitiligo [Unknown]
  - Arthralgia [Unknown]
  - Dry skin [Unknown]
  - Myalgia [Unknown]
  - Carpal tunnel syndrome [Unknown]
